FAERS Safety Report 6120243-9 (Version None)
Quarter: 2009Q1

REPORT INFORMATION
  Report Type: 
  Country: None (occurrence: None)
  Receive Date: 20090312
  Receipt Date: 20090226
  Transmission Date: 20090719
  Serious: Yes (Hospitalization, Other)
  Sender: FDA-Public Use
  Company Number: 232220K09USA

PATIENT
  Age: 30 Year
  Sex: Male

DRUGS (4)
  1. REBIF [Suspect]
     Indication: MULTIPLE SCLEROSIS
     Dosage: 44 MCG, 3 IN 1 WEEKS, SUBCUTANEOUS
     Route: 058
     Dates: start: 20080111, end: 20081008
  2. REBIF [Suspect]
     Indication: MULTIPLE SCLEROSIS
     Dosage: 44 MCG, 3 IN 1 WEEKS, SUBCUTANEOUS
     Route: 058
     Dates: start: 20090226
  3. KLONOPIN [Concomitant]
  4. ROXICODONE [Concomitant]

REACTIONS (4)
  - AGEUSIA [None]
  - HEPATITIS [None]
  - HYPOAESTHESIA FACIAL [None]
  - NUCLEAR MAGNETIC RESONANCE IMAGING ABNORMAL [None]
